FAERS Safety Report 7645991-0 (Version None)
Quarter: 2011Q3

REPORT INFORMATION
  Report Type: 
  Country: None (occurrence: None)
  Receive Date: 20110730
  Receipt Date: 20101112
  Transmission Date: 20111222
  Serious: Yes (Hospitalization)
  Sender: FDA-Public Use
  Company Number: US-AMGEN-KDL244855

PATIENT
  Age: 66 Year
  Sex: Female

DRUGS (2)
  1. ENBREL [Suspect]
     Dosage: 25 MG, 2 TIMES/WK
     Dates: start: 19980101
  2. ENBREL [Suspect]
     Indication: RHEUMATOID ARTHRITIS
     Dosage: 25 MG, 2 TIMES/WK
     Route: 058
     Dates: start: 19980101

REACTIONS (7)
  - ARTHROPATHY [None]
  - ARTHRALGIA [None]
  - RHEUMATOID ARTHRITIS [None]
  - CHONDROPATHY [None]
  - DRY SKIN [None]
  - BONE DISORDER [None]
  - INJECTION SITE PAIN [None]
